FAERS Safety Report 4788252-X (Version None)
Quarter: 2005Q4

REPORT INFORMATION
  Report Type: 
  Country: None (occurrence: None)
  Receive Date: 20051003
  Receipt Date: 20050919
  Transmission Date: 20060501
  Serious: Yes (Hospitalization)
  Sender: FDA-Public Use
  Company Number: ERD2003A00072

PATIENT
  Age: 63 Year
  Sex: Male

DRUGS (9)
  1. PIOGLITAZONE HCL [Suspect]
     Indication: DIABETES MELLITUS NON-INSULIN-DEPENDENT
     Dosage: 45 MG ORAL
     Route: 048
     Dates: start: 20020411
  2. LOFTYL (BUFLOMEDIL HYDROCHLORIDE) [Concomitant]
  3. HYPENLIPEN (CIPROFIBRATE) [Concomitant]
  4. DAONIL (GLIBENCLAMIDE) [Concomitant]
  5. ISOTEN (BISOPROLOL FUMARATE) [Concomitant]
  6. DILTIAZEM HYDROCHLORIDE [Concomitant]
  7. .......... [Concomitant]
  8. LOSEC (OMEPRAZOLE) [Concomitant]
  9. FRUSEMID (FUROSEMIDE) [Concomitant]

REACTIONS (6)
  - ABDOMINAL DISTENSION [None]
  - FAT TISSUE INCREASED [None]
  - LIPOMATOSIS [None]
  - MYOCARDIAL INFARCTION [None]
  - OEDEMA PERIPHERAL [None]
  - WEIGHT INCREASED [None]
